FAERS Safety Report 11045329 (Version 2)
Quarter: 2015Q2

REPORT INFORMATION
  Report Type: Report from Study
  Country: US (occurrence: US)
  Receive Date: 20150417
  Receipt Date: 20150515
  Transmission Date: 20150821
  Serious: Yes (Hospitalization)
  Sender: FDA-Public Use
  Company Number: US-SA-2015SA025247

PATIENT
  Age: 33 Year
  Sex: Female

DRUGS (1)
  1. LEMTRADA [Suspect]
     Active Substance: ALEMTUZUMAB
     Indication: MULTIPLE SCLEROSIS
     Route: 042
     Dates: start: 20150223, end: 20150227

REACTIONS (13)
  - Device related infection [Recovering/Resolving]
  - Feeling cold [Unknown]
  - Nausea [Not Recovered/Not Resolved]
  - Body temperature increased [Unknown]
  - Hypersensitivity [Unknown]
  - Laboratory test abnormal [Unknown]
  - Flushing [Unknown]
  - Feeling abnormal [Unknown]
  - Tremor [Unknown]
  - Sepsis [Recovering/Resolving]
  - Headache [Unknown]
  - Heart rate increased [Unknown]
  - Diarrhoea [Unknown]

NARRATIVE: CASE EVENT DATE: 20150223
